FAERS Safety Report 18303419 (Version 3)
Quarter: 2023Q2

REPORT INFORMATION
  Report Type: Spontaneous
  Country: US (occurrence: US)
  Receive Date: 20200923
  Receipt Date: 20230626
  Transmission Date: 20230722
  Serious: No
  Sender: FDA-Public Use
  Company Number: US-PFIZER INC-2019027662

PATIENT

DRUGS (6)
  1. PHENELZINE [Suspect]
     Active Substance: PHENELZINE
     Indication: Obsessive-compulsive disorder
     Dosage: 15 MILLIGRAM, QID (15MG; TAKE TWO IN THE AM AND THEN ONE EVERY FOUR HOURS FOR TOTAL OF 4 DAILY) (TAB
     Route: 048
     Dates: start: 20200724
  2. PHENELZINE [Suspect]
     Active Substance: PHENELZINE
     Indication: Social anxiety disorder
  3. NARDIL [Concomitant]
     Active Substance: PHENELZINE SULFATE
     Indication: Obsessive-compulsive personality disorder
     Dosage: 15 MILLIGRAM, QID, 15MG; TAKE TWO IN THE AM AND THEN ONE EVERY FOUR HOURS FOR TOTAL OF 4 DAILY BY MO
     Route: 048
  4. NARDIL [Concomitant]
     Active Substance: PHENELZINE SULFATE
     Indication: Social anxiety disorder
  5. ALPRAZOLAM [Concomitant]
     Active Substance: ALPRAZOLAM
     Indication: Anxiety
     Dosage: 5 MILLIGRAM, TAKE 5 TIMES DAILY (TAKING AROUND 25 YEARS)
     Route: 048
  6. TRAZODONE [Concomitant]
     Active Substance: TRAZODONE HYDROCHLORIDE
     Indication: Sleep disorder
     Dosage: 150 MILLIGRAM, QD (TAKE ONCE NIGHTLY)
     Route: 048

REACTIONS (5)
  - Product dispensing error [Unknown]
  - Drug ineffective [Unknown]
  - Feeling abnormal [Unknown]
  - Abdominal discomfort [Unknown]
  - Product substitution issue [Unknown]
